FAERS Safety Report 4523710-4 (Version None)
Quarter: 2004Q4

REPORT INFORMATION
  Report Type: 
  Country: None (occurrence: None)
  Receive Date: 20041210
  Receipt Date: 20041202
  Transmission Date: 20050328
  Serious: Yes (Other)
  Sender: FDA-Public Use
  Company Number: SE-GLAXOSMITHKLINE-B0359377A

PATIENT
  Age: 61 Year
  Sex: Male

DRUGS (5)
  1. AVANDIA [Suspect]
     Dosage: 4MG PER DAY
     Route: 048
     Dates: start: 20040225, end: 20040301
  2. ZOCORD [Concomitant]
     Route: 065
  3. ATENOLOL [Concomitant]
     Route: 065
  4. ASPIRIN [Concomitant]
     Dosage: 75MG PER DAY
     Route: 065
  5. METFORMIN HCL [Concomitant]
     Route: 065
     Dates: start: 20030101

REACTIONS (1)
  - DIARRHOEA HAEMORRHAGIC [None]
